FAERS Safety Report 21762100 (Version 1)
Quarter: 2022Q4

REPORT INFORMATION
  Report Type: Report from Study
  Country: CZ (occurrence: CZ)
  Receive Date: 20221221
  Receipt Date: 20221221
  Transmission Date: 20230113
  Serious: Yes (Hospitalization)
  Sender: FDA-Public Use
  Company Number: CZ-002147023-NVSC2022CZ231303

PATIENT
  Age: 54 Year
  Sex: Female
  Weight: 92.5 kg

DRUGS (1)
  1. TRAMADOL [Suspect]
     Active Substance: TRAMADOL
     Indication: Product used for unknown indication
     Dosage: 75 MILLIGRAM
     Route: 065

REACTIONS (2)
  - Spinal stenosis [Recovered/Resolved]
  - Pseudoradicular syndrome [Recovered/Resolved]

NARRATIVE: CASE EVENT DATE: 20220815
